FAERS Safety Report 9105236 (Version 2)
Quarter: 2013Q1

REPORT INFORMATION
  Report Type: Report from Study
  Country: DE (occurrence: DE)
  Receive Date: 20130221
  Receipt Date: 20130328
  Transmission Date: 20140127
  Serious: Yes (Other)
  Sender: FDA-Public Use
  Company Number: PHHY2013DE014177

PATIENT
  Sex: Male
  Weight: 90 kg

DRUGS (4)
  1. ICL670A [Suspect]
     Indication: IRON OVERLOAD
     Dosage: 500 MG, DAILY
     Route: 048
     Dates: start: 20121227
  2. COTRIMOXAZOL [Concomitant]
     Dosage: 549 MG, UNK
     Dates: start: 20120726
  3. NIVESTIM [Concomitant]
     Dosage: 48 UG, UNK
     Dates: start: 20121218, end: 20121222
  4. DEXAMETHASON ACIS//DEXAMETHASONE [Concomitant]
     Dosage: 8 MG, UNK
     Dates: start: 20121227, end: 20121230

REACTIONS (1)
  - Coronary artery disease [Not Recovered/Not Resolved]
